FAERS Safety Report 7248719-1 (Version None)
Quarter: 2011Q1

REPORT INFORMATION
  Report Type: 
  Country: None (occurrence: None)
  Receive Date: 20110121
  Receipt Date: 20110121
  Transmission Date: 20110831
  Serious: Yes (Other)
  Sender: FDA-Public Use
  Company Number: None

PATIENT
  Sex: Male

DRUGS (3)
  1. PAXIL [Suspect]
     Indication: MAJOR DEPRESSION
     Dates: start: 20100831
  2. REMERON [Suspect]
     Indication: MAJOR DEPRESSION
     Dates: start: 20100831
  3. PROZAC [Suspect]
     Indication: MAJOR DEPRESSION
     Dates: start: 20100831

REACTIONS (6)
  - DRUG INTOLERANCE [None]
  - PRODUCT SUBSTITUTION ISSUE [None]
  - REACTION TO DRUG EXCIPIENTS [None]
  - DIARRHOEA [None]
  - RESTLESS LEGS SYNDROME [None]
  - NERVOUS SYSTEM DISORDER [None]
